FAERS Safety Report 5253670-2 (Version None)
Quarter: 2007Q1

REPORT INFORMATION
  Report Type: 
  Country: None (occurrence: None)
  Receive Date: 20070226
  Receipt Date: 20070213
  Transmission Date: 20070707
  Serious: Yes (Hospitalization)
  Sender: FDA-Public Use
  Company Number: 2007US000356

PATIENT
  Age: 19 Year
  Sex: Female

DRUGS (8)
  1. TACROLIMUS  (TACROLIMUS)  FORMULATION UNKNOWN [Suspect]
     Indication: PROPHYLAXIS AGAINST TRANSPLANT REJECTION
  2. MYCOPHENOLATE MOFETIL [Concomitant]
  3. PREDNISONE TAB [Concomitant]
  4. VALGANCICLOVIR HCL [Concomitant]
  5. NIFEDIPINE [Concomitant]
  6. SULFAMETHOXAZOLE W/TRIMETHOPRIM (SULFAMETHOXAZOLE W/TRIMETHOPRIM) [Concomitant]
  7. FUROSEMIDE (FUROSEMIDE SODIUM) [Concomitant]
  8. SODIUM BICARBONATE IN PLASTIC CONTAINER [Concomitant]

REACTIONS (8)
  - ARTHRALGIA [None]
  - CAT SCRATCH DISEASE [None]
  - FATIGUE [None]
  - GRANULOMA [None]
  - LYMPHADENOPATHY [None]
  - MYALGIA [None]
  - NECROSIS [None]
  - NIGHT SWEATS [None]
